FAERS Safety Report 6110446-1 (Version None)
Quarter: 2009Q1

REPORT INFORMATION
  Report Type: 
  Country: None (occurrence: None)
  Receive Date: 20090310
  Receipt Date: 20090226
  Transmission Date: 20090719
  Serious: Yes (Other)
  Sender: FDA-Public Use
  Company Number: VE-ELI_LILLY_AND_COMPANY-VE200902004627

PATIENT
  Age: 46 Year
  Sex: Female

DRUGS (1)
  1. ZYPREXA [Suspect]
     Indication: DEPRESSION
     Dosage: UNK, UNKNOWN
     Route: 065

REACTIONS (4)
  - DIZZINESS [None]
  - PIGMENTATION DISORDER [None]
  - THROMBOCYTOPENIA [None]
  - WEIGHT INCREASED [None]
